FAERS Safety Report 8910035 (Version 1)
Quarter: 2012Q4

REPORT INFORMATION
  Report Type: 
  Country: ES (occurrence: ES)
  Receive Date: 20121115
  Receipt Date: 20121115
  Transmission Date: 20130627
  Serious: Yes (Other)
  Sender: FDA-Public Use
  Company Number: ES-ABBOTT-12P-144-1007272-00

PATIENT
  Age: 45 Year
  Sex: Male

DRUGS (3)
  1. NORVIR [Suspect]
     Indication: HIV INFECTION
     Route: 048
     Dates: start: 20110419, end: 20120224
  2. DARUNAVIR [Suspect]
     Indication: HIV INFECTION
     Dates: start: 20110419, end: 20120224
  3. SERETIDE [Concomitant]
     Indication: PRODUCT USED FOR UNKNOWN INDICATION
     Dates: start: 20120224

REACTIONS (1)
  - Lipohypertrophy [Recovering/Resolving]
